FAERS Safety Report 19477686 (Version 1)
Quarter: 2021Q2

REPORT INFORMATION
  Report Type: Spontaneous
  Country: US (occurrence: US)
  Receive Date: 20210630
  Receipt Date: 20210630
  Transmission Date: 20210717
  Serious: Yes (Other)
  Sender: FDA-Public Use
  Company Number: US-MYLANLABS-2021M1038860

PATIENT
  Age: 64 Year
  Sex: Female

DRUGS (3)
  1. OSIMERTINIB. [Concomitant]
     Active Substance: OSIMERTINIB
     Indication: LUNG ADENOCARCINOMA STAGE IV
     Route: 065
  2. TRANEXAMIC ACID. [Suspect]
     Active Substance: TRANEXAMIC ACID
     Indication: BRONCHIAL HAEMORRHAGE
     Dosage: ENDOBRONCHIAL
  3. EPINEPHRINE. [Suspect]
     Active Substance: EPINEPHRINE
     Indication: BRONCHIAL HAEMORRHAGE
     Dosage: ENDOBRONCHIAL

REACTIONS (1)
  - Drug ineffective [Unknown]
